FAERS Safety Report 8932106 (Version 1)
Quarter: 2012Q4

REPORT INFORMATION
  Report Type: 
  Country: FR (occurrence: FR)
  Receive Date: 20121128
  Receipt Date: 20121128
  Transmission Date: 20130627
  Serious: Yes (Hospitalization)
  Sender: FDA-Public Use
  Company Number: FR-JNJFOC-20121111469

PATIENT
  Sex: Female

DRUGS (7)
  1. SPORANOX [Suspect]
     Indication: HISTOPLASMOSIS
     Route: 048
  2. SPORANOX [Suspect]
     Indication: HISTOPLASMOSIS
     Route: 048
     Dates: start: 20120709, end: 20120901
  3. SPORANOX [Suspect]
     Indication: HISTOPLASMOSIS
     Route: 048
  4. RANITIDINE [Concomitant]
     Indication: ABDOMINAL PAIN UPPER
     Route: 048
     Dates: end: 20120913
  5. KLIPAL [Concomitant]
     Indication: PRODUCT USED FOR UNKNOWN INDICATION
     Route: 048
  6. LAROXYL [Concomitant]
     Indication: PRODUCT USED FOR UNKNOWN INDICATION
     Route: 048
  7. CARTREX [Concomitant]
     Indication: PRODUCT USED FOR UNKNOWN INDICATION
     Route: 048

REACTIONS (3)
  - Asthenia [Recovered/Resolved]
  - Oedema [Recovered/Resolved]
  - Dyspnoea [Recovered/Resolved]
